FAERS Safety Report 6034188-6 (Version None)
Quarter: 2009Q1

REPORT INFORMATION
  Report Type: 
  Country: None (occurrence: None)
  Receive Date: 20090108
  Receipt Date: 20081223
  Transmission Date: 20090719
  Serious: Yes (Death)
  Sender: FDA-Public Use
  Company Number: 000056

PATIENT
  Age: 89 Year
  Sex: Female

DRUGS (4)
  1. ISOSORBIDE DINITRATE [Suspect]
  2. GALENIC (AMLODIPINE/BENAZEPRIL HCL) [Suspect]
  3. PHENYTOIN [Suspect]
  4. FEXOFENADINE [Suspect]

REACTIONS (4)
  - DRUG INTERACTION [None]
  - INCORRECT DOSE ADMINISTERED [None]
  - INCORRECT ROUTE OF DRUG ADMINISTRATION [None]
  - WRONG DRUG ADMINISTERED [None]
